FAERS Safety Report 14133621 (Version 1)
Quarter: 2017Q4

REPORT INFORMATION
  Report Type: Spontaneous
  Country: US (occurrence: US)
  Receive Date: 20171026
  Receipt Date: 20171026
  Transmission Date: 20180321
  Serious: No
  Sender: FDA-Public Use
  Company Number: US-DRREDDYS-USA/USA/16/0084906

PATIENT
  Age: 24 Year
  Sex: Male
  Weight: 72.57 kg

DRUGS (1)
  1. RANITIDINE. [Suspect]
     Active Substance: RANITIDINE
     Indication: PRODUCT USED FOR UNKNOWN INDICATION
     Route: 048
     Dates: start: 20161114, end: 20161114

REACTIONS (1)
  - Amphetamines positive [Unknown]

NARRATIVE: CASE EVENT DATE: 20161115
